FAERS Safety Report 18380772 (Version 1)
Quarter: 2020Q4

REPORT INFORMATION
  Report Type: Spontaneous
  Country: US (occurrence: US)
  Receive Date: 20201013
  Receipt Date: 20201013
  Transmission Date: 20210114
  Serious: Yes (Life-Threatening, Hospitalization, Disabling)
  Sender: FDA-Public Use
  Company Number: None

PATIENT
  Age: 57 Year
  Sex: Male
  Weight: 81.65 kg

DRUGS (1)
  1. DESMOPRESSIN ACETATE NASAL SPRAY 10MCG PERO, 1ML [Suspect]
     Active Substance: DESMOPRESSIN ACETATE
     Indication: DIABETES INSIPIDUS
     Dosage: ?          QUANTITY:1 DF DOSAGE FORM;?
     Dates: start: 201810, end: 202008

REACTIONS (3)
  - Blood sodium decreased [None]
  - Red blood cell count increased [None]
  - Blood testosterone decreased [None]

NARRATIVE: CASE EVENT DATE: 201901
